FAERS Safety Report 6253636-X (Version None)
Quarter: 2009Q3

REPORT INFORMATION
  Report Type: 
  Country: None (occurrence: None)
  Receive Date: 20090701
  Receipt Date: 20090624
  Transmission Date: 20100115
  Serious: Yes (Other)
  Sender: FDA-Public Use
  Company Number: NO-PFIZER INC-2009231153

PATIENT
  Age: 74 Year

DRUGS (1)
  1. LIPITOR [Suspect]
     Indication: HYPERCHOLESTEROLAEMIA
     Dosage: 40 MG, 1X/DAY
     Route: 048
     Dates: start: 20081203, end: 20090529

REACTIONS (4)
  - DECREASED APPETITE [None]
  - HEPATIC ENZYME INCREASED [None]
  - LISTLESS [None]
  - NAUSEA [None]
